FAERS Safety Report 20721120 (Version 1)
Quarter: 2022Q2

REPORT INFORMATION
  Report Type: Spontaneous
  Country: US (occurrence: None)
  Receive Date: 20220415
  Receipt Date: 20220415
  Transmission Date: 20220721
  Serious: No
  Sender: FDA-Public Use
  Company Number: None

PATIENT
  Age: 74 Year
  Sex: Female
  Weight: 99 kg

DRUGS (1)
  1. HYDROCODONE BITARTRATE AND ACETAMINOPHEN [Suspect]
     Active Substance: ACETAMINOPHEN\HYDROCODONE BITARTRATE
     Indication: Pain management
     Dosage: OTHER QUANTITY : 20 TABLET(S)?FREQUENCY : EVERY 6 HOURS?
     Route: 048

REACTIONS (2)
  - Eructation [None]
  - Abdominal pain upper [None]

NARRATIVE: CASE EVENT DATE: 20220414
